FAERS Safety Report 10501647 (Version 1)
Quarter: 2014Q4

REPORT INFORMATION
  Report Type: Spontaneous
  Country: US (occurrence: None)
  Receive Date: 20141006
  Receipt Date: 20141006
  Transmission Date: 20150528
  Serious: Yes (Other)
  Sender: FDA-Public Use
  Company Number: None

PATIENT
  Age: 59 Year
  Sex: Male
  Weight: 98.4 kg

DRUGS (2)
  1. VINBLASTINE [Suspect]
     Active Substance: VINBLASTINE
     Indication: BLADDER CANCER
     Dosage: 6.7 MG, IV PUSH, 7/31, 8/8, 8/21,8/28,9/5,9/18,9/25
  2. DOXORUBICIN [Suspect]
     Active Substance: DOXORUBICIN
     Indication: BLADDER CANCER
     Dosage: 6/10, 7/10, 7/10,7/11, 8/8, 9/5 33.5 MG TWICE (ON 8/8) IV
     Route: 042

REACTIONS (5)
  - Swelling [None]
  - Vein disorder [None]
  - Wrong technique in drug usage process [None]
  - Vascular pain [None]
  - Erythema [None]

NARRATIVE: CASE EVENT DATE: 20140808
